FAERS Safety Report 23157339 (Version 3)
Quarter: 2024Q3

REPORT INFORMATION
  Report Type: Spontaneous
  Country: DE (occurrence: DE)
  Receive Date: 20231108
  Receipt Date: 20240722
  Transmission Date: 20241016
  Serious: Yes (Other)
  Sender: TAKEDA
  Company Number: DE-DCGMA-23202030

PATIENT
  Age: 69 Year
  Sex: Male

DRUGS (25)
  1. ALBUMIN HUMAN [Suspect]
     Active Substance: ALBUMIN HUMAN
     Indication: Product used for unknown indication
     Dosage: 50 MILLILITER
     Route: 042
  2. ALBUMIN HUMAN [Suspect]
     Active Substance: ALBUMIN HUMAN
     Dosage: 50 MILLILITER
     Route: 042
  3. DEXAMETHASONE [Concomitant]
     Active Substance: DEXAMETHASONE
     Dosage: UNK
     Route: 042
  4. METFORMIN [Concomitant]
     Active Substance: METFORMIN HYDROCHLORIDE
     Dosage: 1000 MILLIGRAM, QD
     Route: 048
  5. METAMIZOLE [Concomitant]
     Active Substance: METAMIZOLE
     Dosage: 1 GRAM
     Route: 048
  6. METAMIZOLE [Concomitant]
     Active Substance: METAMIZOLE
     Dosage: 1 GRAM
     Route: 048
  7. PIPAMPERONE HYDROCHLORIDE [Concomitant]
     Active Substance: PIPAMPERONE HYDROCHLORIDE
     Dosage: 40 MILLIGRAM
     Route: 048
  8. CHOLECALCIFEROL [Concomitant]
     Active Substance: CHOLECALCIFEROL
     Dosage: 1000 INTERNATIONAL UNIT, QD
     Route: 048
  9. PANTOPRAZOLE SODIUM [Concomitant]
     Active Substance: PANTOPRAZOLE SODIUM
     Dosage: 40 MILLIGRAM, QD
     Route: 048
  10. LACTULOSE [Concomitant]
     Active Substance: LACTULOSE
     Dosage: 30 MILLILITER, QD
     Route: 048
  11. LACTULOSE [Concomitant]
     Active Substance: LACTULOSE
     Dosage: 30 MILLILITER, QD
     Route: 048
  12. FOLIC ACID [Concomitant]
     Active Substance: FOLIC ACID
     Dosage: 5 MILLIGRAM, QD
     Route: 048
  13. PHYTONADIONE [Concomitant]
     Active Substance: PHYTONADIONE
     Dosage: UNK
     Route: 042
  14. PHYTONADIONE [Concomitant]
     Active Substance: PHYTONADIONE
  15. CLORAZEPATE DIPOTASSIUM [Concomitant]
     Active Substance: CLORAZEPATE DIPOTASSIUM
     Dosage: 60 MILLIGRAM, QD
     Route: 048
  16. CLORAZEPATE DIPOTASSIUM [Concomitant]
     Active Substance: CLORAZEPATE DIPOTASSIUM
     Dosage: 60 MILLIGRAM, QD
     Route: 048
  17. B1 ASMEDIC [Concomitant]
     Dosage: UNK, QD
     Route: 048
  18. B1 ASMEDIC [Concomitant]
     Dosage: UNK, QD
     Route: 048
  19. CANDESARTAN [Concomitant]
     Active Substance: CANDESARTAN
     Dosage: 8 MILLIGRAM, QD
     Route: 048
  20. CANDESARTAN [Concomitant]
     Active Substance: CANDESARTAN
     Dosage: 8 MILLIGRAM, QD
     Route: 048
  21. HEPARIN SODIUM [Concomitant]
     Active Substance: HEPARIN SODIUM
     Dosage: 10000 INTERNATIONAL UNIT, QD
     Route: 042
  22. TORSEMIDE [Concomitant]
     Active Substance: TORSEMIDE
     Dosage: 20 MILLIGRAM, QD
     Route: 048
  23. TORSEMIDE [Concomitant]
     Active Substance: TORSEMIDE
     Dosage: 20 MILLIGRAM, QD
     Route: 048
  24. PANTOPRAZOLE SODIUM [Concomitant]
     Active Substance: PANTOPRAZOLE SODIUM
     Dosage: 40 MILLIGRAM, QD
     Route: 048
  25. DEXAMETHASONE [Concomitant]
     Active Substance: DEXAMETHASONE
     Dosage: UNK
     Route: 042

REACTIONS (13)
  - Myalgia [Recovering/Resolving]
  - Tachycardia [Recovering/Resolving]
  - Arrhythmia [Recovering/Resolving]
  - Urticaria [Recovering/Resolving]
  - Flank pain [Recovering/Resolving]
  - Pruritus [Recovering/Resolving]
  - Jaundice [Recovering/Resolving]
  - Vertigo [Recovering/Resolving]
  - Hyperhidrosis [Recovering/Resolving]
  - Malaise [Recovering/Resolving]
  - Circulatory collapse [Recovering/Resolving]
  - Shock [Recovering/Resolving]
  - Hypersensitivity [Recovering/Resolving]

NARRATIVE: CASE EVENT DATE: 20230916
